FAERS Safety Report 10744390 (Version 1)
Quarter: 2015Q1

REPORT INFORMATION
  Report Type: Spontaneous
  Country: US (occurrence: None)
  Receive Date: 20150126
  Receipt Date: 20150126
  Transmission Date: 20150721
  Serious: Yes (Death)
  Sender: FDA-Public Use
  Company Number: None

PATIENT
  Age: 66 Year
  Sex: Female
  Weight: 46.72 kg

DRUGS (1)
  1. 6-MP [Suspect]
     Active Substance: MERCAPTOPURINE
     Indication: IRRITABLE BOWEL SYNDROME
     Dates: start: 1998, end: 2007

REACTIONS (2)
  - Chronic lymphocytic leukaemia transformation [None]
  - Diffuse large B-cell lymphoma [None]

NARRATIVE: CASE EVENT DATE: 20150110
